FAERS Safety Report 7343139-3 (Version None)
Quarter: 2011Q1

REPORT INFORMATION
  Report Type: 
  Country: None (occurrence: None)
  Receive Date: 20110310
  Receipt Date: 20110225
  Transmission Date: 20110831
  Serious: Yes (Life-Threatening, Hospitalization, Disabling)
  Sender: FDA-Public Use
  Company Number: DE-AMGEN-US071613

PATIENT
  Age: 18 Year
  Sex: Male
  Weight: 78 kg

DRUGS (3)
  1. ENBREL [Suspect]
     Indication: PRODUCT USED FOR UNKNOWN INDICATION
     Dosage: 25 MG, 2 TIMES/WK
     Route: 058
     Dates: start: 20021101
  2. MTX                                /00113802/ [Suspect]
     Indication: SPINAL OSTEOARTHRITIS
     Dosage: 20 MG, QWK
     Route: 048
  3. FOLIC ACID [Concomitant]
     Dosage: 2.5 MG, 2 TIMES/WK
     Route: 048

REACTIONS (4)
  - HYPOCALCAEMIA [None]
  - THYROID CANCER [None]
  - METASTASIS [None]
  - VOCAL CORD PARESIS [None]
